FAERS Safety Report 5912246-1 (Version None)
Quarter: 2008Q4

REPORT INFORMATION
  Report Type: 
  Country: None (occurrence: None)
  Receive Date: 20081008
  Receipt Date: 20081008
  Transmission Date: 20090506
  Serious: Yes (Other)
  Sender: FDA-Public Use
  Company Number: A0750921A

PATIENT
  Age: 39 Year
  Sex: Female
  Weight: 81 kg

DRUGS (5)
  1. ALLI [Suspect]
     Indication: WEIGHT LOSS DIET
     Route: 048
     Dates: start: 20080929, end: 20081003
  2. KEFLEX [Suspect]
     Indication: TOOTH ABSCESS
     Route: 065
     Dates: start: 20081002
  3. METHADONE HCL [Concomitant]
     Indication: BACK PAIN
  4. KLONOPIN [Concomitant]
     Indication: NERVOUS SYSTEM DISORDER
  5. MULTI-VITAMINS [Concomitant]

REACTIONS (11)
  - ABASIA [None]
  - BALANCE DISORDER [None]
  - DEPRESSED LEVEL OF CONSCIOUSNESS [None]
  - DIZZINESS [None]
  - DRUG INTERACTION [None]
  - FATIGUE [None]
  - HYPERVENTILATION [None]
  - ILL-DEFINED DISORDER [None]
  - SOMNOLENCE [None]
  - SYNCOPE [None]
  - TOOTH ABSCESS [None]
